FAERS Safety Report 4728707-7 (Version None)
Quarter: 2005Q3

REPORT INFORMATION
  Report Type: 
  Country: None (occurrence: None)
  Receive Date: 20050721
  Receipt Date: 20050503
  Transmission Date: 20060218
  Serious: No
  Sender: FDA-Public Use
  Company Number: 2005SP000538

PATIENT
  Age: 35 Year
  Sex: Female
  Weight: 77.1115 kg

DRUGS (2)
  1. LUNESTA [Suspect]
     Indication: INSOMNIA
     Dosage: 3 MG; HS; ORAL; SEE IMAGE
     Route: 048
     Dates: start: 20050410, end: 20050507
  2. LUNESTA [Suspect]
     Indication: INSOMNIA
     Dosage: 3 MG; HS; ORAL; SEE IMAGE
     Route: 048
     Dates: start: 20050508, end: 20050509

REACTIONS (10)
  - ABDOMINAL DISTENSION [None]
  - ALOPECIA [None]
  - ASTHMA [None]
  - CHEST DISCOMFORT [None]
  - DYSGEUSIA [None]
  - FATIGUE [None]
  - INCREASED APPETITE [None]
  - MALAISE [None]
  - NAUSEA [None]
  - SPEECH DISORDER [None]
